FAERS Safety Report 17790601 (Version 2)
Quarter: 2020Q2

REPORT INFORMATION
  Report Type: Spontaneous
  Country: US (occurrence: US)
  Receive Date: 20200514
  Receipt Date: 20200525
  Transmission Date: 20200714
  Serious: No
  Sender: FDA-Public Use
  Company Number: US-ASTRAZENECA-2020SE62198

PATIENT
  Age: 64 Year
  Sex: Male

DRUGS (3)
  1. AMITIZA [Concomitant]
     Active Substance: LUBIPROSTONE
  2. COLACE [Concomitant]
     Active Substance: DOCUSATE SODIUM
     Dosage: TWICE A DAY
  3. MOVANTIK [Suspect]
     Active Substance: NALOXEGOL OXALATE
     Indication: CONSTIPATION
     Dosage: DAILY
     Route: 048

REACTIONS (5)
  - Respiratory disorder [Unknown]
  - Gait disturbance [Unknown]
  - Weight increased [Unknown]
  - Hyperhidrosis [Unknown]
  - Insurance issue [Unknown]

NARRATIVE: CASE EVENT DATE: 2019
